FAERS Safety Report 9650317 (Version 2)
Quarter: 2013Q4

REPORT INFORMATION
  Report Type: Spontaneous
  Country: US (occurrence: US)
  Receive Date: 20131028
  Receipt Date: 20131028
  Transmission Date: 20140711
  Serious: Yes (Death)
  Sender: FDA-Public Use
  Company Number: US-NAPPMUNDI-USA-2012-0089922

PATIENT
  Age: 48 Year
  Sex: Female
  Weight: 102.4 kg

DRUGS (3)
  1. OXYCODONE HYDROCHLORIDE (SIMILAR TO NDA 22-272) [Suspect]
     Indication: PAIN
     Dosage: 30 MG, UNK
     Route: 048
  2. HYDROCODONE W/APAP                 /01554201/ [Concomitant]
     Indication: PAIN
     Dosage: UNK MG, UNK
  3. ALPRAZOLAM GENERICS [Concomitant]
     Indication: ANXIETY
     Dosage: UNK

REACTIONS (1)
  - Accidental overdose [Fatal]
